FAERS Safety Report 16324185 (Version 1)
Quarter: 2019Q2

REPORT INFORMATION
  Report Type: Spontaneous
  Country: DE (occurrence: DE)
  Receive Date: 20190517
  Receipt Date: 20190517
  Transmission Date: 20190711
  Serious: Yes (Disabling)
  Sender: FDA-Public Use
  Company Number: DE-TEVA-2019-DE-1049129

PATIENT
  Age: 57 Year
  Sex: Female
  Weight: 75 kg

DRUGS (2)
  1. ESCITALOPRAM 20 MG/ML [Suspect]
     Active Substance: ESCITALOPRAM OXALATE
     Dosage: 6-7 TROPFEN
     Dates: start: 20190130, end: 20190203
  2. ESCITALOPRAM 20 MG/ML [Suspect]
     Active Substance: ESCITALOPRAM OXALATE
     Indication: ADJUSTMENT DISORDER
     Dosage: 5GTT
     Dates: start: 20190123, end: 20190129

REACTIONS (10)
  - Presyncope [Recovered/Resolved]
  - Tremor [Recovered/Resolved]
  - Diarrhoea [Recovered/Resolved]
  - Pain in extremity [Recovered/Resolved]
  - Hyposmia [Recovering/Resolving]
  - Hyperhidrosis [Recovered/Resolved]
  - Feeling hot [Recovered/Resolved]
  - Decreased appetite [Recovering/Resolving]
  - Headache [Recovered/Resolved]
  - Hypogeusia [Recovering/Resolving]

NARRATIVE: CASE EVENT DATE: 20190123
